FAERS Safety Report 17782821 (Version 1)
Quarter: 2020Q2

REPORT INFORMATION
  Report Type: Spontaneous
  Country: FI (occurrence: FI)
  Receive Date: 20200513
  Receipt Date: 20200513
  Transmission Date: 20200714
  Serious: Yes (Death)
  Sender: FDA-Public Use
  Company Number: FI-TEVA-2020-FI-1233502

PATIENT
  Age: 21 Year
  Sex: Female

DRUGS (1)
  1. VENLAFAXINE [Suspect]
     Active Substance: VENLAFAXINE HYDROCHLORIDE
     Indication: DEPRESSION
     Dosage: 150 MG
     Route: 048
     Dates: start: 20190805

REACTIONS (10)
  - Sensory overload [Fatal]
  - Nightmare [Fatal]
  - Sleep disorder [Fatal]
  - Restless legs syndrome [Fatal]
  - Arrhythmia [Fatal]
  - Completed suicide [Fatal]
  - Feeling abnormal [Fatal]
  - Drug ineffective [Fatal]
  - Infection susceptibility increased [Fatal]
  - Suicidal ideation [Fatal]

NARRATIVE: CASE EVENT DATE: 201908
